FAERS Safety Report 16808338 (Version 2)
Quarter: 2019Q3

REPORT INFORMATION
  Report Type: Spontaneous
  Country: US (occurrence: US)
  Receive Date: 20190916
  Receipt Date: 20190923
  Transmission Date: 20191005
  Serious: Yes (Death, Life-Threatening, Hospitalization, Other)
  Sender: FDA-Public Use
  Company Number: US-AUROBINDO-AUR-APL-2019-058746

PATIENT
  Age: 18 Year
  Sex: Male

DRUGS (4)
  1. NADOLOL. [Concomitant]
     Active Substance: NADOLOL
     Indication: PRODUCT USED FOR UNKNOWN INDICATION
     Dosage: UNK
     Route: 065
  2. FLECAINIDE [Suspect]
     Active Substance: FLECAINIDE
     Dosage: 1.3 MILLILITER, SECOND DOSE OF 25 ML (500MG) OF FLECAINIDE RATHER THAN HIS PRESCRIBED 1.3 ML DOSE
     Route: 048
  3. FLECAINIDE [Suspect]
     Active Substance: FLECAINIDE
     Dosage: 25 MILLILITER
     Route: 048
  4. FLECAINIDE [Suspect]
     Active Substance: FLECAINIDE
     Indication: PRODUCT USED FOR UNKNOWN INDICATION
     Dosage: 25 MILLIGRAM, TWO TIMES A DAY
     Route: 065

REACTIONS (7)
  - Bradycardia [Fatal]
  - Hypotension [Recovering/Resolving]
  - Mental status changes [Unknown]
  - Incorrect dose administered [Fatal]
  - Tachyarrhythmia [Fatal]
  - Accidental overdose [Fatal]
  - Cardiac arrest [Fatal]
